FAERS Safety Report 17442564 (Version 1)
Quarter: 2020Q1

REPORT INFORMATION
  Report Type: Spontaneous
  Country: US (occurrence: US)
  Receive Date: 20200220
  Receipt Date: 20200220
  Transmission Date: 20200409
  Serious: Yes (Other)
  Sender: FDA-Public Use
  Company Number: US-BIOMARINAP-US-2020-128470

PATIENT
  Sex: Female

DRUGS (1)
  1. PALYNZIQ [Suspect]
     Active Substance: PEGVALIASE-PQPZ
     Indication: PHENYLKETONURIA
     Dosage: 2.5 MILLIGRAM, QW
     Route: 065
     Dates: start: 20200203

REACTIONS (9)
  - Arthralgia [Unknown]
  - Swelling face [Unknown]
  - Acne [Unknown]
  - Swollen tongue [Unknown]
  - Fatigue [Unknown]
  - Injection site erythema [Unknown]
  - Pruritus [Unknown]
  - Peripheral swelling [Unknown]
  - Rash papular [Unknown]
